FAERS Safety Report 20281819 (Version 1)
Quarter: 2022Q1

REPORT INFORMATION
  Report Type: Report from Study
  Country: US (occurrence: US)
  Receive Date: 20220103
  Receipt Date: 20220103
  Transmission Date: 20220423
  Serious: Yes (Death, Hospitalization, Other)
  Sender: FDA-Public Use
  Company Number: US-BRISTOL-MYERS SQUIBB COMPANY-BMS-2021-144269

PATIENT
  Age: 50 Year
  Sex: Female
  Weight: 81.8 kg

DRUGS (3)
  1. NIVOLUMAB [Suspect]
     Active Substance: NIVOLUMAB
     Indication: Anal cancer
     Dosage: 240 MILLIGRAM
     Route: 065
     Dates: start: 20210429, end: 20210506
  2. CARBOPLATIN [Suspect]
     Active Substance: CARBOPLATIN
     Indication: Anal cancer
     Dosage: 625 MILLIGRAM
     Route: 065
     Dates: start: 20210429, end: 20210429
  3. PACLITAXEL [Suspect]
     Active Substance: PACLITAXEL
     Indication: Anal cancer
     Dosage: 144 MILLIGRAM
     Route: 065
     Dates: start: 20210429, end: 20210506

REACTIONS (6)
  - Malignant neoplasm progression [Fatal]
  - Neutrophil count decreased [Recovered/Resolved]
  - White blood cell count decreased [Recovered/Resolved]
  - Dyspnoea [Recovered/Resolved]
  - Pneumonia [Recovered/Resolved]
  - Pulmonary thrombosis [Unknown]

NARRATIVE: CASE EVENT DATE: 20210430
